FAERS Safety Report 19676536 (Version 2)
Quarter: 2025Q3

REPORT INFORMATION
  Report Type: Report from Study
  Country: KR (occurrence: KR)
  Receive Date: 20210809
  Receipt Date: 20250819
  Transmission Date: 20251021
  Serious: Yes (Hospitalization)
  Sender: NOVARTIS
  Company Number: KR-NOVARTISPH-NVSC2021KR177892

PATIENT
  Age: 56 Year
  Sex: Female
  Weight: 42 kg

DRUGS (9)
  1. KISQALI [Suspect]
     Active Substance: RIBOCICLIB SUCCINATE
     Indication: Breast cancer metastatic
     Route: 048
     Dates: start: 20210722, end: 20210802
  2. FEMARA [Concomitant]
     Active Substance: LETROZOLE
     Indication: Breast cancer
     Route: 065
     Dates: start: 20210722, end: 20210802
  3. LIPITOR [Concomitant]
     Active Substance: ATORVASTATIN CALCIUM
     Indication: Dyslipidaemia
     Route: 065
     Dates: start: 20210708
  4. TRAMADOL HYDROCHLORIDE [Concomitant]
     Active Substance: TRAMADOL HYDROCHLORIDE
     Indication: Pain
     Route: 065
     Dates: start: 20210612
  5. XGEVA [Concomitant]
     Active Substance: DENOSUMAB
     Indication: Prophylaxis
     Route: 065
     Dates: start: 20210722, end: 20210722
  6. Toranzin [Concomitant]
     Indication: Pain
     Route: 065
     Dates: start: 20210802
  7. Harmonilan [Concomitant]
     Indication: Prophylaxis
     Route: 065
     Dates: start: 20210728, end: 20210728
  8. FREAMINE III NOS [Concomitant]
     Active Substance: AMINO ACIDS
     Indication: Prophylaxis
     Route: 065
     Dates: start: 20210728, end: 20210730
  9. VITAMINS [Concomitant]
     Active Substance: VITAMINS
     Indication: Prophylaxis
     Route: 065
     Dates: start: 20210728, end: 20210730

REACTIONS (1)
  - Pneumonitis [Recovering/Resolving]

NARRATIVE: CASE EVENT DATE: 20210802
